FAERS Safety Report 6609916-9 (Version None)
Quarter: 2010Q1

REPORT INFORMATION
  Report Type: 
  Country: None (occurrence: None)
  Receive Date: 20100216
  Receipt Date: 20090128
  Transmission Date: 20100710
  Serious: Yes (Other)
  Sender: FDA-Public Use
  Company Number: MC200900024

PATIENT
  Age: 70 Year
  Sex: Female
  Weight: 43.1 kg

DRUGS (2)
  1. ANGIOMAX [Suspect]
     Dosage: BOLUS, INTRAVENOUS, 2.3 ML, HR, INTRAVENOUS
     Route: 040
     Dates: start: 20090112, end: 20090112
  2. ANGIOMAX [Suspect]
     Dosage: BOLUS, INTRAVENOUS, 2.3 ML, HR, INTRAVENOUS
     Route: 040
     Dates: start: 20090112, end: 20090112

REACTIONS (1)
  - HAEMORRHAGE [None]
